FAERS Safety Report 4377138-0 (Version None)
Quarter: 2004Q2

REPORT INFORMATION
  Report Type: 
  Country: None (occurrence: None)
  Receive Date: 20040608
  Receipt Date: 20040524
  Transmission Date: 20050107
  Serious: Yes (Death, Life-Threatening)
  Sender: FDA-Public Use
  Company Number: 101838

PATIENT
  Age: 38 Year
  Sex: Female
  Weight: 68 kg

DRUGS (9)
  1. HERCEPTIN(TRASTUZUMAB) PWDR + SOLVENT, INFUSION SOLN [Suspect]
     Indication: BREAST CANCER METASTATIC
     Dosage: 2 MG/KG, 1/WEEK, INTRAVENOUS
     Route: 042
     Dates: start: 20011025, end: 20011217
  2. HERCEPTIN(TRASTUZUMAB) PWDR + SOLVENT, INFUSION SOLN [Suspect]
     Indication: BREAST CANCER METASTATIC
     Dosage: 2 MG/KG, 1/WEEK, INTRAVENOUS
     Route: 042
     Dates: start: 20011101, end: 20011217
  3. MORPHINE [Concomitant]
  4. PAMIDRONATE DISODIUM [Concomitant]
  5. LOXOPROFEN (LOXOPROFEN SODIUM) [Concomitant]
  6. DEPAS (ETIZOLAM) [Concomitant]
  7. HALCION [Concomitant]
  8. RADIOTHERAPY (RADIATION THERAPY) [Concomitant]
  9. PACLITAXEL [Concomitant]

REACTIONS (12)
  - ARRHYTHMIA SUPRAVENTRICULAR [None]
  - BLOOD PRESSURE DIASTOLIC INCREASED [None]
  - CARDIAC FAILURE [None]
  - CHEST PAIN [None]
  - DEPRESSED LEVEL OF CONSCIOUSNESS [None]
  - HYPERCALCAEMIA [None]
  - NAUSEA [None]
  - SINUS TACHYCARDIA [None]
  - VENTRICULAR ARRHYTHMIA [None]
  - VENTRICULAR EXTRASYSTOLES [None]
  - VENTRICULAR TACHYCARDIA [None]
  - VOMITING [None]
